FAERS Safety Report 5107040-8 (Version None)
Quarter: 2006Q3

REPORT INFORMATION
  Report Type: 
  Country: None (occurrence: None)
  Receive Date: 20060913
  Receipt Date: 20060829
  Transmission Date: 20061208
  Serious: Yes (Hospitalization)
  Sender: FDA-Public Use
  Company Number: US200607000511

PATIENT
  Age: 14 Year
  Sex: Female
  Weight: 76.5 kg

DRUGS (1)
  1. ATOMOXETINE HYDROCHLORIDE (ATOMOXETINE HYDROCHLORIDE) CAPSULE [Suspect]
     Dosage: 80 MG, EACH MORNING, ORAL
     Route: 048
     Dates: start: 20030701

REACTIONS (1)
  - APPENDICITIS [None]
